FAERS Safety Report 7273806-1 (Version None)
Quarter: 2011Q1

REPORT INFORMATION
  Report Type: 
  Country: None (occurrence: None)
  Receive Date: 20110203
  Receipt Date: 20110201
  Transmission Date: 20110831
  Serious: Yes (Hospitalization)
  Sender: FDA-Public Use
  Company Number: US-MEDIMMUNE-MEDI-0012378

PATIENT
  Sex: Female

DRUGS (3)
  1. SYNAGIS [Suspect]
     Indication: HEART DISEASE CONGENITAL
     Route: 030
  2. LASIX [Concomitant]
  3. TYLENOL-500 [Concomitant]

REACTIONS (1)
  - RESPIRATORY TRACT INFECTION [None]
